FAERS Safety Report 21629038 (Version 2)
Quarter: 2022Q4

REPORT INFORMATION
  Report Type: Report from Study
  Country: US (occurrence: US)
  Receive Date: 20221122
  Receipt Date: 20221124
  Transmission Date: 20230113
  Serious: No
  Sender: FDA-Public Use
  Company Number: US-SA-SAC20221117000476

PATIENT
  Age: 59 Year
  Sex: Female

DRUGS (1)
  1. KEVZARA [Suspect]
     Active Substance: SARILUMAB
     Dosage: 200 MG, OTHER
     Route: 058
     Dates: end: 20221110

REACTIONS (9)
  - Swelling [Unknown]
  - Influenza like illness [Unknown]
  - Dizziness [Unknown]
  - Pain [Unknown]
  - Hyperhidrosis [Unknown]
  - Injection site pruritus [Unknown]
  - Injection site swelling [Unknown]
  - Hypersensitivity [Unknown]
  - Injection site erythema [Unknown]
